FAERS Safety Report 21328694 (Version 1)
Quarter: 2022Q3

REPORT INFORMATION
  Report Type: Spontaneous
  Country: JP (occurrence: JP)
  Receive Date: 20220913
  Receipt Date: 20220913
  Transmission Date: 20221026
  Serious: Yes (Death, Other)
  Sender: FDA-Public Use
  Company Number: JP-JAZZ-2022-JP-029254

PATIENT
  Age: 31 Year
  Sex: Male
  Weight: 73.4 kg

DRUGS (2)
  1. DEFITELIO [Suspect]
     Active Substance: DEFIBROTIDE SODIUM
     Indication: Venoocclusive liver disease
     Dosage: 25 MILLIGRAM/KILOGRAM
     Route: 042
     Dates: start: 20220418, end: 20220505
  2. ANTITHROMBIN GAMMA [Concomitant]
     Indication: Product used for unknown indication
     Dosage: UNK
     Dates: start: 20220418, end: 20220502

REACTIONS (2)
  - Venoocclusive liver disease [Fatal]
  - Respiratory failure [Unknown]

NARRATIVE: CASE EVENT DATE: 20220418
